FAERS Safety Report 23654266 (Version 1)
Quarter: 2024Q1

REPORT INFORMATION
  Report Type: Spontaneous
  Country: AT (occurrence: AT)
  Receive Date: 20240320
  Receipt Date: 20240320
  Transmission Date: 20240409
  Serious: Yes (Other)
  Sender: FDA-Public Use
  Company Number: AT-002147023-NVSC2024AT057152

PATIENT
  Age: 69 Year
  Sex: Female

DRUGS (4)
  1. LETROZOLE [Suspect]
     Active Substance: LETROZOLE
     Indication: Breast cancer
     Dosage: 1X1
     Route: 065
     Dates: start: 201811
  2. ABEMACICLIB [Suspect]
     Active Substance: ABEMACICLIB
     Indication: Breast cancer
     Dosage: 150 MG 2X1
     Route: 065
     Dates: start: 201811
  3. ABEMACICLIB [Suspect]
     Active Substance: ABEMACICLIB
     Dosage: 100 MG 2X1
     Route: 065
  4. DENOSUMAB [Suspect]
     Active Substance: DENOSUMAB
     Indication: Breast cancer
     Dosage: FOUR-WEEKLY
     Route: 065
     Dates: start: 201811

REACTIONS (3)
  - Thrombocytopenia [Recovered/Resolved]
  - Alopecia [Unknown]
  - Diarrhoea [Unknown]
